FAERS Safety Report 6090954-2 (Version None)
Quarter: 2009Q1

REPORT INFORMATION
  Report Type: 
  Country: None (occurrence: None)
  Receive Date: 20090225
  Receipt Date: 20090218
  Transmission Date: 20090719
  Serious: Yes (Hospitalization, Other)
  Sender: FDA-Public Use
  Company Number: US-RANBAXY-2009US-21424

PATIENT

DRUGS (2)
  1. ISOTRETINOIN [Suspect]
     Indication: ACNE
     Dosage: 40 MG,
     Route: 048
     Dates: start: 20080911
  2. CLARAVIS [Suspect]
     Indication: ACNE
     Dosage: 40 MG, BID
     Route: 048
     Dates: start: 20081014

REACTIONS (4)
  - CROHN'S DISEASE [None]
  - DEHYDRATION [None]
  - DIARRHOEA [None]
  - VIRAL INFECTION [None]
